FAERS Safety Report 5092793-8 (Version None)
Quarter: 2006Q3

REPORT INFORMATION
  Report Type: 
  Country: None (occurrence: None)
  Receive Date: 20060830
  Receipt Date: 20060711
  Transmission Date: 20061208
  Serious: Yes (Hospitalization)
  Sender: FDA-Public Use
  Company Number: 2006AP03254

PATIENT
  Age: 75 Year
  Sex: Male

DRUGS (4)
  1. CASODEX [Suspect]
     Indication: PROSTATE CANCER
     Route: 048
     Dates: start: 20060613, end: 20060704
  2. UNKNOWN DRUG [Suspect]
     Indication: PAIN
     Route: 065
  3. ODYNE [Concomitant]
     Indication: PROSTATE CANCER
  4. LEUPLIN [Concomitant]
     Indication: PROSTATE CANCER
     Dates: start: 20030922

REACTIONS (1)
  - MULTIPLE MYELOMA [None]
